FAERS Safety Report 4263406-X (Version None)
Quarter: 2004Q1

REPORT INFORMATION
  Report Type: 
  Country: None (occurrence: None)
  Receive Date: 20040104
  Receipt Date: 20040104
  Transmission Date: 20041129
  Serious: Yes (Other)
  Sender: FDA-Public Use
  Company Number: None

PATIENT
  Age: 49 Year
  Sex: Male
  Weight: 76.2043 kg

DRUGS (9)
  1. RITONAVIR 100 MG [Suspect]
     Indication: HIV INFECTION
     Dosage: 100 MG TWICE DAIL ORAL
     Route: 048
     Dates: start: 20030311, end: 20030613
  2. OXYCODONE HCL [Concomitant]
  3. LAMIVUDINE [Concomitant]
  4. STAVUDINE [Concomitant]
  5. INDINAVIR [Concomitant]
  6. SULFAMETHOXAZOLE + TRIMETHOPRIM [Concomitant]
  7. KETOCONAZOLE [Concomitant]
  8. MEGESTROL [Concomitant]
  9. TRAZODONE HCL [Concomitant]

REACTIONS (2)
  - ALANINE AMINOTRANSFERASE INCREASED [None]
  - ASPARTATE AMINOTRANSFERASE INCREASED [None]
